FAERS Safety Report 11082561 (Version 1)
Quarter: 2015Q2

REPORT INFORMATION
  Report Type: Spontaneous
  Country: US (occurrence: US)
  Receive Date: 20150501
  Receipt Date: 20150501
  Transmission Date: 20150821
  Serious: Yes (Other)
  Sender: FDA-Public Use
  Company Number: US-BAUSCH-BL-2015-012393

PATIENT
  Age: 83 Year
  Sex: Male
  Weight: 81.72 kg

DRUGS (4)
  1. JUBLIA [Suspect]
     Active Substance: EFINACONAZOLE
     Indication: TINEA PEDIS
     Dosage: APPLIED TO ALL 10 TEN TOES ONCE DAILY IN THE MORNING
     Route: 061
     Dates: start: 201501
  2. METRONIDAZOLE. [Suspect]
     Active Substance: METRONIDAZOLE
     Indication: LUNG INFECTION
     Route: 048
     Dates: start: 201504
  3. LEVOFLOXACIN. [Suspect]
     Active Substance: LEVOFLOXACIN
     Indication: LUNG INFECTION
     Route: 048
     Dates: start: 201504
  4. PREDNISONE. [Suspect]
     Active Substance: PREDNISONE
     Indication: LUNG INFECTION
     Route: 048
     Dates: start: 201504

REACTIONS (3)
  - Weight decreased [Not Recovered/Not Resolved]
  - Decreased appetite [Not Recovered/Not Resolved]
  - Lung infection [Not Recovered/Not Resolved]

NARRATIVE: CASE EVENT DATE: 201504
